FAERS Safety Report 16476022 (Version 3)
Quarter: 2019Q3

REPORT INFORMATION
  Report Type: Spontaneous
  Country: ES (occurrence: ES)
  Receive Date: 20190625
  Receipt Date: 20190709
  Transmission Date: 20191004
  Serious: Yes (Other)
  Sender: FDA-Public Use
  Company Number: ES-GILEAD-2019-0415152

PATIENT
  Age: 77 Year
  Sex: Male

DRUGS (1)
  1. GENVOYA [Suspect]
     Active Substance: COBICISTAT\ELVITEGRAVIR\EMTRICITABINE\TENOFOVIR ALAFENAMIDE FUMARATE
     Indication: HIV INFECTION
     Dosage: UNK
     Route: 065
     Dates: start: 2016

REACTIONS (10)
  - Weight decreased [Recovered/Resolved]
  - Asthenia [Recovered/Resolved]
  - Splenomegaly [Unknown]
  - Haematuria [Recovered/Resolved]
  - Plasma cell myeloma [Unknown]
  - Liver disorder [Unknown]
  - Contusion [Recovered/Resolved]
  - Temperature regulation disorder [Recovered/Resolved]
  - Monoclonal gammopathy [Unknown]
  - Visceral leishmaniasis [Unknown]

NARRATIVE: CASE EVENT DATE: 2016
